FAERS Safety Report 5308575-5 (Version None)
Quarter: 2007Q2

REPORT INFORMATION
  Report Type: 
  Country: None (occurrence: None)
  Receive Date: 20070423
  Receipt Date: 20070423
  Transmission Date: 20071010
  Serious: Yes (Life-Threatening, Hospitalization)
  Sender: FDA-Public Use
  Company Number: None

PATIENT
  Age: 71 Year
  Sex: Female
  Weight: 90 kg

DRUGS (1)
  1. VASORETIC-ACEI/DIURETIC- [Suspect]
     Indication: HYPERTENSION
     Dates: start: 20070105, end: 20070106

REACTIONS (4)
  - ANGIOEDEMA [None]
  - DRUG ADMINISTRATION ERROR [None]
  - MYOPATHY [None]
  - SIMILAR REACTION ON PREVIOUS EXPOSURE TO DRUG [None]
